FAERS Safety Report 4024613 (Version 4)
Quarter: 2015Q4

REPORT INFORMATION
  Report Type: Spontaneous
  Country: JP (occurrence: JP)
  Receive Date: 20031110
  Receipt Date: 20151027
  Transmission Date: 20160305
  Serious: Yes (Hospitalization)
  Sender: FDA-Public Use
  Company Number: PHBS2003JP12070

PATIENT
  Age: 17 Year
  Sex: Female

DRUGS (7)
  1. MIGSIS [Concomitant]
     Active Substance: LOMERIZINE HYDROCHLORIDE
     Dosage: 10 MG/DAY
     Route: 048
     Dates: start: 200308, end: 20031013
  2. VOLTAREN [Suspect]
     Active Substance: DICLOFENAC SODIUM
     Indication: UPPER RESPIRATORY TRACT INFLAMMATION
  3. VOLTAREN [Suspect]
     Active Substance: DICLOFENAC SODIUM
     Indication: UPPER RESPIRATORY TRACT INFECTION
     Dosage: 1 DF/DAY
     Route: 054
     Dates: start: 20031009, end: 20031011
  4. CRAVIT [Suspect]
     Active Substance: LEVOFLOXACIN
     Dosage: 3 DF/DAY
     Route: 048
     Dates: start: 20031009, end: 20031011
  5. LOXONIN [Suspect]
     Active Substance: LOXOPROFEN SODIUM
     Dosage: 2 DF/DAY
     Route: 048
     Dates: start: 20031009, end: 20031011
  6. VOLTAREN [Suspect]
     Active Substance: DICLOFENAC SODIUM
     Indication: NASOPHARYNGITIS
     Route: 054
     Dates: start: 20031009, end: 20031011
  7. METILON [Suspect]
     Active Substance: METAMIZOLE SODIUM
     Dosage: 1 DF/DAY
     Route: 030
     Dates: start: 20031011, end: 20031011

REACTIONS (3)
  - Pyrexia [Recovered/Resolved]
  - White blood cell count decreased [Recovered/Resolved]
  - Histiocytosis haematophagic [Recovered/Resolved]

NARRATIVE: CASE EVENT DATE: 20031011
